FAERS Safety Report 20169082 (Version 1)
Quarter: 2021Q4

REPORT INFORMATION
  Report Type: Spontaneous
  Country: US (occurrence: None)
  Receive Date: 20211209
  Receipt Date: 20211209
  Transmission Date: 20220303
  Serious: Yes (Death)
  Sender: FDA-Public Use
  Company Number: None

PATIENT
  Age: 32 Year
  Sex: Male

DRUGS (3)
  1. HERBALS\MITRAGYNINE [Suspect]
     Active Substance: HERBALS\MITRAGYNINE
     Dosage: OTHER FREQUENCY : OVER 80 GM IN{1 WK;?
     Dates: start: 20200701, end: 20201002
  2. LEXAPRO [Concomitant]
     Active Substance: ESCITALOPRAM OXALATE
  3. IBUPROFEN [Concomitant]
     Active Substance: IBUPROFEN

REACTIONS (5)
  - Gun shot wound [None]
  - Completed suicide [None]
  - Psychotic disorder [None]
  - Substance use [None]
  - Toxicologic test abnormal [None]

NARRATIVE: CASE EVENT DATE: 20201002
